FAERS Safety Report 5478135-4 (Version None)
Quarter: 2007Q4

REPORT INFORMATION
  Report Type: 
  Country: None (occurrence: None)
  Receive Date: 20071005
  Receipt Date: 20061116
  Transmission Date: 20080405
  Serious: No
  Sender: FDA-Public Use
  Company Number: US-BRISTOL-MYERS SQUIBB COMPANY-13582226

PATIENT

DRUGS (2)
  1. AVAPRO [Suspect]
  2. LIPITOR [Concomitant]

REACTIONS (1)
  - CONJUNCTIVITIS [None]
